FAERS Safety Report 4599394-6 (Version None)
Quarter: 2005Q1

REPORT INFORMATION
  Report Type: 
  Country: None (occurrence: None)
  Receive Date: 20050303
  Receipt Date: 20050303
  Transmission Date: 20050727
  Serious: No
  Sender: FDA-Public Use
  Company Number: None

PATIENT
  Age: 44 Year
  Sex: Female
  Weight: 70.3075 kg

DRUGS (4)
  1. REMICADE [Suspect]
     Indication: RHEUMATOID ARTHRITIS
     Dosage: SIX WEEK   INFUSION   INTRAVENOU
     Route: 042
     Dates: start: 20040801, end: 20050228
  2. FLEXERIL [Concomitant]
  3. CELEBREX [Concomitant]
  4. LIDOCAIN PATCHES [Concomitant]

REACTIONS (8)
  - ARTHRALGIA [None]
  - BURNING SENSATION [None]
  - DISORIENTATION [None]
  - MYALGIA [None]
  - PAIN [None]
  - PRURITUS [None]
  - URTICARIA [None]
  - VISUAL DISTURBANCE [None]
